FAERS Safety Report 17798116 (Version 1)
Quarter: 2020Q2

REPORT INFORMATION
  Report Type: Spontaneous
  Country: CA (occurrence: CA)
  Receive Date: 20200518
  Receipt Date: 20200518
  Transmission Date: 20200714
  Serious: Yes (Other)
  Sender: FDA-Public Use
  Company Number: CA-BAYER-2020-082889

PATIENT
  Age: 79 Year
  Sex: Female

DRUGS (1)
  1. RESTORALAX [Suspect]
     Active Substance: POLYETHYLENE GLYCOL 3350
     Indication: TOTAL COMPLEMENT ACTIVITY DECREASED
     Dosage: UNK
     Dates: start: 20200508, end: 20200509

REACTIONS (1)
  - Constipation [None]

NARRATIVE: CASE EVENT DATE: 20200508
